FAERS Safety Report 7097153-6 (Version None)
Quarter: 2010Q4

REPORT INFORMATION
  Report Type: 
  Country: None (occurrence: None)
  Receive Date: 20101111
  Receipt Date: 20100401
  Transmission Date: 20110411
  Serious: Yes (Other)
  Sender: FDA-Public Use
  Company Number: US-KINGPHARMUSA00001-K201000407

PATIENT
  Age: 37 Year
  Sex: Male

DRUGS (1)
  1. EMBEDA [Suspect]
     Dosage: 30 MG, UNK
     Route: 051

REACTIONS (3)
  - ABNORMAL BEHAVIOUR [None]
  - DRUG ABUSE [None]
  - FEELING ABNORMAL [None]
